FAERS Safety Report 9240165 (Version 2)
Quarter: 2013Q2

REPORT INFORMATION
  Report Type: Spontaneous
  Country: GB (occurrence: None)
  Receive Date: 20130417
  Receipt Date: 20130422
  Transmission Date: 20140414
  Serious: Yes (Other)
  Sender: FDA-Public Use
  Company Number: AUR-APL-2013-02987

PATIENT
  Age: 75 Year
  Sex: Male
  Weight: 70 kg

DRUGS (3)
  1. RAMIPRIL [Suspect]
     Indication: PRODUCT USED FOR UNKNOWN INDICATION
     Dates: start: 20130227
  2. AMLODIPINE (AMLODIPINE) [Concomitant]
  3. CINNARIZINE (CINNARIZINE) [Concomitant]

REACTIONS (4)
  - Renal impairment [None]
  - Blood urea decreased [None]
  - Blood electrolytes decreased [None]
  - Blood urea abnormal [None]
